FAERS Safety Report 6454264-3 (Version None)
Quarter: 2009Q4

REPORT INFORMATION
  Report Type: 
  Country: None (occurrence: None)
  Receive Date: 20091124
  Receipt Date: 20091116
  Transmission Date: 20100525
  Serious: Yes (Other)
  Sender: FDA-Public Use
  Company Number: US-JNJCH-2009030014

PATIENT
  Age: 23 Year
  Sex: Female
  Weight: 61.2 kg

DRUGS (4)
  1. DRAMAMINE LESS DROWSY FORMULA [Suspect]
     Indication: MOTION SICKNESS
     Dosage: TEXT:1 TABLET ONCE
     Route: 048
     Dates: start: 20091115, end: 20091116
  2. LISDEXAMFETAMINE DIMESYLATE [Concomitant]
     Dosage: TEXT:^60^ UNSPECIFIED
     Route: 065
  3. PAXIL [Concomitant]
     Indication: ANXIETY
     Dosage: TEXT:UNSPECIFIED
     Route: 065
  4. KLONOPIN [Concomitant]
     Indication: ANXIETY
     Dosage: TEXT:UNSPECIFIED
     Route: 065

REACTIONS (4)
  - ASTHENOPIA [None]
  - DYSARTHRIA [None]
  - SOMNOLENCE [None]
  - STRABISMUS [None]
